FAERS Safety Report 9305362 (Version 6)
Quarter: 2014Q1

REPORT INFORMATION
  Report Type: Spontaneous
  Country: US (occurrence: US)
  Receive Date: 20130523
  Receipt Date: 20140131
  Transmission Date: 20141002
  Serious: Yes (Disabling, Other)
  Sender: FDA-Public Use
  Company Number: US-PFIZER INC-2013157435

PATIENT
  Age: 56 Year
  Sex: Female
  Weight: 78 kg

DRUGS (13)
  1. LYRICA [Suspect]
     Dosage: 150 MG, 2X/DAY
  2. LYRICA [Suspect]
     Dosage: 150 MG, 2X/DAY
  3. ELAVIL [Concomitant]
     Dosage: 50 MG, UNK
  4. OPTIVAR [Concomitant]
     Route: 047
  5. COMBIPATCH [Concomitant]
     Dosage: 0.05-0.25 MG, DAILY
  6. CYMBALTA [Concomitant]
     Dosage: 60 MG, UNK
  7. ESTRACE [Concomitant]
     Dosage: 2 MG, UNK
  8. PROSED/DS [Concomitant]
     Dosage: 81.6 MG, UNK
  9. ROBAXIN [Concomitant]
     Dosage: 750 MG, UNK
  10. RELAFEN [Concomitant]
     Dosage: 750 MG, UNK
  11. PRILOSEC [Concomitant]
     Dosage: 20 MG, UNK
  12. ROXICET [Concomitant]
     Dosage: 5-325 MG
  13. ULTRAM [Concomitant]
     Dosage: 50 MG, UNK

REACTIONS (4)
  - Road traffic accident [Unknown]
  - Cervical vertebral fracture [Unknown]
  - Peripheral nerve injury [Unknown]
  - Limb injury [Unknown]
